FAERS Safety Report 8255633-1 (Version None)
Quarter: 2012Q2

REPORT INFORMATION
  Report Type: 
  Country: None (occurrence: None)
  Receive Date: 20120403
  Receipt Date: 20120403
  Transmission Date: 20120825
  Serious: Yes (Hospitalization, Other)
  Sender: FDA-Public Use
  Company Number: None

PATIENT
  Age: 73 Year
  Sex: Female
  Weight: 63.502 kg

DRUGS (1)
  1. DALIRESP [Suspect]
     Indication: CHRONIC OBSTRUCTIVE PULMONARY DISEASE
     Dosage: 500MG TABLE ONCE A DAY
     Route: 048
     Dates: start: 20120305, end: 20120309

REACTIONS (7)
  - DIARRHOEA [None]
  - CHRONIC OBSTRUCTIVE PULMONARY DISEASE [None]
  - HEADACHE [None]
  - POOR QUALITY SLEEP [None]
  - FATIGUE [None]
  - ASTHENIA [None]
  - CONDITION AGGRAVATED [None]
